FAERS Safety Report 21446601 (Version 1)
Quarter: 2022Q4

REPORT INFORMATION
  Report Type: Spontaneous
  Country: GB (occurrence: GB)
  Receive Date: 20221012
  Receipt Date: 20221012
  Transmission Date: 20230112
  Serious: Yes (Other)
  Sender: FDA-Public Use
  Company Number: GB-MYLANLABS-2022M1096562

PATIENT
  Age: 71 Year
  Sex: Female
  Weight: 58.4 kg

DRUGS (1)
  1. CLOZARIL [Suspect]
     Active Substance: CLOZAPINE
     Indication: Schizophrenia
     Dosage: 300 MILLIGRAM, HS (300 MG NOCTE, GRADUALLY REDUCED AND STOPPED)
     Route: 048
     Dates: start: 20100322, end: 20220923

REACTIONS (2)
  - Schizophrenia [Unknown]
  - Constipation [Recovering/Resolving]

NARRATIVE: CASE EVENT DATE: 20220314
